FAERS Safety Report 5765043-4 (Version None)
Quarter: 2008Q2

REPORT INFORMATION
  Report Type: 
  Country: None (occurrence: None)
  Receive Date: 20080611
  Receipt Date: 20080606
  Transmission Date: 20081010
  Serious: Yes (Hospitalization)
  Sender: FDA-Public Use
  Company Number: US-ASTRAZENECA-2008UW11378

PATIENT
  Sex: Male

DRUGS (2)
  1. ATENOLOL [Suspect]
     Route: 048
  2. BLOOD PRESSURE MEDICATIONS [Interacting]
     Indication: HYPERTENSION

REACTIONS (2)
  - DRUG INTERACTION [None]
  - HEART RATE [None]
